FAERS Safety Report 7628274-4 (Version None)
Quarter: 2011Q3

REPORT INFORMATION
  Report Type: 
  Country: None (occurrence: None)
  Receive Date: 20110714
  Receipt Date: 20110708
  Transmission Date: 20111222
  Serious: Yes (Other)
  Sender: FDA-Public Use
  Company Number: CL-325-2011

PATIENT
  Age: 7 Year
  Sex: Male

DRUGS (4)
  1. METRONIDAZOLE [Suspect]
     Indication: SURGICAL PRECONDITIONING
     Dosage: ORAL
     Route: 048
  2. CLOFARABINE [Concomitant]
  3. THIOTEPA [Concomitant]
  4. BUSULFAN [Suspect]
     Indication: TRANSPLANT
     Dosage: INTRAVENOUS
     Route: 042

REACTIONS (1)
  - DRUG INTERACTION [None]
